FAERS Safety Report 7295446-0 (Version None)
Quarter: 2011Q1

REPORT INFORMATION
  Report Type: 
  Country: None (occurrence: None)
  Receive Date: 20110216
  Receipt Date: 20110201
  Transmission Date: 20110831
  Serious: No
  Sender: FDA-Public Use
  Company Number: US-ABBOTT-11P-163-0701723-00

PATIENT
  Sex: Female

DRUGS (4)
  1. SIMCOR [Suspect]
     Dosage: 500/20 MILLIGRAMS
  2. NEXIUM [Concomitant]
     Indication: PRODUCT USED FOR UNKNOWN INDICATION
  3. UNKNOWN MEDICATION [Concomitant]
     Indication: HYPERTENSION
  4. SIMCOR [Suspect]
     Indication: BLOOD CHOLESTEROL INCREASED
     Dosage: 1000/20MG AT BEDTIME
     Route: 048
     Dates: start: 20101001

REACTIONS (2)
  - GASTROOESOPHAGEAL REFLUX DISEASE [None]
  - FLUSHING [None]
